FAERS Safety Report 7831266-3 (Version None)
Quarter: 2011Q4

REPORT INFORMATION
  Report Type: 
  Country: None (occurrence: None)
  Receive Date: 20111021
  Receipt Date: 20111014
  Transmission Date: 20120403
  Serious: Yes (Other)
  Sender: FDA-Public Use
  Company Number: US-TEVA-305202USA

PATIENT
  Sex: Male

DRUGS (1)
  1. PROAIR HFA [Suspect]
     Dosage: 2 INHALATIONS EVERY 4 HRS AS NEEDED
     Route: 055

REACTIONS (2)
  - CHOKING [None]
  - DEVICE BREAKAGE [None]
